FAERS Safety Report 6959260-5 (Version None)
Quarter: 2010Q3

REPORT INFORMATION
  Report Type: 
  Country: None (occurrence: None)
  Receive Date: 20100831
  Receipt Date: 20100727
  Transmission Date: 20110219
  Serious: No
  Sender: FDA-Public Use
  Company Number: US-PFIZER INC-2010094326

PATIENT
  Sex: Male
  Weight: 111 kg

DRUGS (2)
  1. DIDREX [Suspect]
     Indication: WEIGHT CONTROL
     Dosage: 50 MG, 3X/DAY
     Route: 048
  2. LORTAB [Concomitant]
     Indication: ARTHRITIS
     Dosage: 5 MG, 3X/DAY
     Route: 048

REACTIONS (1)
  - AMPHETAMINES POSITIVE [None]
